FAERS Safety Report 5615778-9 (Version None)
Quarter: 2008Q1

REPORT INFORMATION
  Report Type: 
  Country: None (occurrence: None)
  Receive Date: 20080201
  Receipt Date: 20080125
  Transmission Date: 20080703
  Serious: Yes (Other)
  Sender: FDA-Public Use
  Company Number: 2008002333

PATIENT
  Sex: Female

DRUGS (1)
  1. POLYSPORIN OINTMENT [Suspect]
     Indication: NASAL DISORDER
     Dosage: NASAL
     Route: 045
     Dates: start: 20071103

REACTIONS (1)
  - PHOTOPSIA [None]
